FAERS Safety Report 9689551 (Version 1)
Quarter: 2013Q4

REPORT INFORMATION
  Report Type: Spontaneous
  Country: US (occurrence: US)
  Receive Date: 20131115
  Receipt Date: 20131115
  Transmission Date: 20140711
  Serious: Yes (Other)
  Sender: FDA-Public Use
  Company Number: US-AMGEN-USASP2013079464

PATIENT
  Age: 63 Year
  Sex: Female

DRUGS (10)
  1. PROLIA [Suspect]
     Indication: PRODUCT USED FOR UNKNOWN INDICATION
     Route: 065
  2. IMURAN                             /00001501/ [Concomitant]
  3. PREDNISONE [Concomitant]
  4. ZOFRAN                             /00955301/ [Concomitant]
  5. TEMAZEPAM [Concomitant]
     Dosage: 60 MG, QD
  6. TRAZODONE [Concomitant]
  7. ACIPHEX [Concomitant]
  8. LEXAPRO [Concomitant]
  9. VITAMIN B12                        /00056201/ [Concomitant]
  10. VITAMIN D                          /00107901/ [Concomitant]

REACTIONS (2)
  - Hepatitis [Unknown]
  - Hepatic cirrhosis [Unknown]
